FAERS Safety Report 7639596-5 (Version None)
Quarter: 2011Q3

REPORT INFORMATION
  Report Type: 
  Country: None (occurrence: None)
  Receive Date: 20110727
  Receipt Date: 20110719
  Transmission Date: 20111222
  Serious: Yes (Death)
  Sender: FDA-Public Use
  Company Number: GB-EISAI INC-E2020-09463-SPO-GB

PATIENT
  Age: 91 Year
  Sex: Female

DRUGS (1)
  1. ARICEPT [Suspect]
     Dosage: UNKNOWN
     Route: 048
     Dates: start: 20110701

REACTIONS (1)
  - GASTROINTESTINAL HAEMORRHAGE [None]
